FAERS Safety Report 12985895 (Version 2)
Quarter: 2017Q1

REPORT INFORMATION
  Report Type: Report from Study
  Country: US (occurrence: US)
  Receive Date: 20161130
  Receipt Date: 20170111
  Transmission Date: 20170428
  Serious: Yes (Other)
  Sender: FDA-Public Use
  Company Number: US-GILEAD-2016-0245746

PATIENT
  Age: 55 Year
  Sex: Male

DRUGS (3)
  1. ADEMPAS [Concomitant]
     Active Substance: RIOCIGUAT
  2. AMBRISENTAN [Suspect]
     Active Substance: AMBRISENTAN
     Indication: PRODUCT USED FOR UNKNOWN INDICATION
     Dosage: 10 MG, QD
     Route: 065
  3. COUMADIN [Concomitant]
     Active Substance: WARFARIN SODIUM

REACTIONS (6)
  - Loss of consciousness [Recovered/Resolved]
  - Pneumonia [Unknown]
  - Head injury [Unknown]
  - Influenza [Unknown]
  - Syncope [Unknown]
  - Muscle strain [Recovered/Resolved]

NARRATIVE: CASE EVENT DATE: 201612
